FAERS Safety Report 7576029-1 (Version None)
Quarter: 2011Q2

REPORT INFORMATION
  Report Type: 
  Country: None (occurrence: None)
  Receive Date: 20110628
  Receipt Date: 20110603
  Transmission Date: 20111010
  Serious: Yes (Hospitalization, Other)
  Sender: FDA-Public Use
  Company Number: US-BAYER-201026346NA

PATIENT
  Sex: Female
  Weight: 115.65 kg

DRUGS (7)
  1. SYNTHROID [Concomitant]
     Dosage: UNK
     Dates: start: 19980101
  2. NARCO 10/325 [Concomitant]
     Dosage: UNK
     Dates: start: 20050524
  3. PROMETHAZINE [Concomitant]
     Dosage: UNK
     Dates: start: 20050524
  4. SPIRONOLACTONE [Concomitant]
     Dosage: 25 MG, UNK
     Dates: start: 20050427
  5. ZYRTEC-D 12 HOUR [Concomitant]
     Dosage: UNK
     Dates: start: 20050505
  6. YASMIN [Suspect]
     Indication: PRODUCT USED FOR UNKNOWN INDICATION
     Dosage: UNK
     Route: 048
     Dates: start: 20050401, end: 20050701
  7. LEVOTHYROXINE SODIUM [Concomitant]
     Dosage: UNK
     Dates: start: 20050501, end: 20050801

REACTIONS (8)
  - CHEST PAIN [None]
  - HEADACHE [None]
  - THROMBOSIS [None]
  - DEEP VEIN THROMBOSIS [None]
  - PULMONARY EMBOLISM [None]
  - DYSPNOEA [None]
  - NAUSEA [None]
  - VOMITING [None]
